FAERS Safety Report 7754205-2 (Version None)
Quarter: 2011Q3

REPORT INFORMATION
  Report Type: 
  Country: None (occurrence: None)
  Receive Date: 20110915
  Receipt Date: 20110913
  Transmission Date: 20111222
  Serious: Yes (Life-Threatening, Hospitalization)
  Sender: FDA-Public Use
  Company Number: BR-B.I. PHARMACEUTICALS,INC./RIDGEFIELD-2011-BR-00910BR

PATIENT
  Age: 80 Year
  Sex: Female

DRUGS (5)
  1. BISOPROLOL FUMARATE [Concomitant]
  2. PRADAXA [Suspect]
     Indication: ATRIAL FIBRILLATION
     Dosage: 220 MG
     Route: 048
     Dates: start: 20110301
  3. UNSPECIFIED [Concomitant]
     Indication: DIURETIC THERAPY
  4. UNSPECIFIED [Concomitant]
     Indication: ANGIOTENSIN CONVERTING ENZYME
  5. UNSPECIFIED [Concomitant]
     Indication: ANTICONVULSANT DRUG LEVEL

REACTIONS (1)
  - ISCHAEMIC STROKE [None]
